FAERS Safety Report 16203226 (Version 1)
Quarter: 2019Q2

REPORT INFORMATION
  Report Type: Spontaneous
  Country: US (occurrence: US)
  Receive Date: 20190416
  Receipt Date: 20190416
  Transmission Date: 20190711
  Serious: No
  Sender: FDA-Public Use
  Company Number: US-BAYER-2019-076730

PATIENT
  Sex: Female

DRUGS (3)
  1. GINSENG NOS [Concomitant]
     Active Substance: HERBALS
  2. MIRENA [Suspect]
     Active Substance: LEVONORGESTREL
     Dosage: 20 MCG/24HR, CONT
     Route: 015
     Dates: start: 201903
  3. MIRENA [Suspect]
     Active Substance: LEVONORGESTREL

REACTIONS (2)
  - Vulvovaginal dryness [None]
  - Vaginal discharge [None]
